FAERS Safety Report 5391925-1 (Version None)
Quarter: 2007Q3

REPORT INFORMATION
  Report Type: 
  Country: None (occurrence: None)
  Receive Date: 20070720
  Receipt Date: 20070710
  Transmission Date: 20080115
  Serious: Yes (Other)
  Sender: FDA-Public Use
  Company Number: PHFR2007GB02111

PATIENT
  Age: 50 Year
  Sex: Female

DRUGS (2)
  1. CLOZAPINE [Suspect]
     Route: 065
  2. CLOZAPINE [Suspect]
     Route: 048
     Dates: start: 20060501, end: 20070501

REACTIONS (3)
  - CONVULSION [None]
  - MENTAL IMPAIRMENT [None]
  - SEDATION [None]
